FAERS Safety Report 17858765 (Version 1)
Quarter: 2020Q2

REPORT INFORMATION
  Report Type: Spontaneous
  Country: US (occurrence: US)
  Receive Date: 20200603
  Receipt Date: 20200603
  Transmission Date: 20200714
  Serious: No
  Sender: FDA-Public Use
  Company Number: None

PATIENT
  Age: 73 Year
  Sex: Male

DRUGS (18)
  1. ESBRIET [Suspect]
     Active Substance: PIRFENIDONE
     Route: 048
     Dates: start: 20200330
  2. CLOBETASOL [Concomitant]
     Active Substance: CLOBETASOL
  3. FUROSEMIDE. [Concomitant]
     Active Substance: FUROSEMIDE
  4. TAMSULOSIN [Concomitant]
     Active Substance: TAMSULOSIN
  5. TOPIRAMATE. [Concomitant]
     Active Substance: TOPIRAMATE
  6. METFORMIN [Concomitant]
     Active Substance: METFORMIN HYDROCHLORIDE
  7. LISINOPRIL. [Concomitant]
     Active Substance: LISINOPRIL
  8. PRASUGREL. [Concomitant]
     Active Substance: PRASUGREL
  9. AMOX/K CLAV [Concomitant]
     Active Substance: AMOXICILLIN\CLAVULANATE POTASSIUM
  10. FLUTICASONE. [Concomitant]
     Active Substance: FLUTICASONE
  11. AZITHROMYCIN ANHYDROUS. [Concomitant]
     Active Substance: AZITHROMYCIN ANHYDROUS
  12. CYCLOBENZAPR [Concomitant]
     Active Substance: CYCLOBENZAPRINE
  13. DILT-XR [Concomitant]
     Active Substance: DILTIAZEM
  14. KETOCONAZOLE. [Concomitant]
     Active Substance: KETOCONAZOLE
  15. ATROVASTATIN [Concomitant]
     Active Substance: ATORVASTATIN CALCIUM
  16. METHYLPRED [Concomitant]
     Active Substance: METHYLPREDNISOLONE
  17. METOPROL SUC [Concomitant]
  18. OMEPRAZOLE. [Concomitant]
     Active Substance: OMEPRAZOLE

REACTIONS (1)
  - Product dose omission [None]

NARRATIVE: CASE EVENT DATE: 20200521
